FAERS Safety Report 4351550-8 (Version None)
Quarter: 2004Q2

REPORT INFORMATION
  Report Type: 
  Country: None (occurrence: None)
  Receive Date: 20040428
  Receipt Date: 20040415
  Transmission Date: 20050107
  Serious: Yes (Other)
  Sender: FDA-Public Use
  Company Number: 205939

PATIENT
  Age: 51 Year
  Sex: Female

DRUGS (5)
  1. RITUXAN [Suspect]
     Indication: LYMPHOMA
     Dosage: 375 MG/M2, Q28D, INTRAVENOUS
     Route: 042
     Dates: start: 20040126
  2. CLOZAPINE [Suspect]
     Indication: SCHIZOPHRENIA
  3. CYTOXAN [Suspect]
     Indication: LYMPHOMA
     Dosage: 750 MG, Q28D
     Dates: start: 20040126
  4. DOXORUBICIN HCL [Suspect]
     Indication: LYMPHOMA
     Dosage: 95 MG/M2, Q28D
     Dates: start: 20040126
  5. ONCOVIN [Suspect]
     Indication: LYMPHOMA
     Dosage: 1.4 MG/M2, Q28D
     Dates: start: 20040126

REACTIONS (2)
  - AGRANULOCYTOSIS [None]
  - WHITE BLOOD CELL COUNT DECREASED [None]
